FAERS Safety Report 18013968 (Version 1)
Quarter: 2020Q3

REPORT INFORMATION
  Report Type: Report from Study
  Country: BR (occurrence: BR)
  Receive Date: 20200713
  Receipt Date: 20200713
  Transmission Date: 20201103
  Serious: Yes (Other)
  Sender: FDA-Public Use
  Company Number: BR-JNJFOC-20200701770

PATIENT
  Sex: Female
  Weight: 64 kg

DRUGS (11)
  1. ATENOLOL. [Concomitant]
     Active Substance: ATENOLOL
     Indication: PRODUCT USED FOR UNKNOWN INDICATION
  2. FLUOXETINE HYDROCHLORIDE. [Concomitant]
     Active Substance: FLUOXETINE HYDROCHLORIDE
     Indication: PRODUCT USED FOR UNKNOWN INDICATION
  3. VITAMIN D3 [Concomitant]
     Active Substance: CHOLECALCIFEROL
     Indication: PRODUCT USED FOR UNKNOWN INDICATION
  4. REMICADE [Suspect]
     Active Substance: INFLIXIMAB
     Route: 042
  5. METHOTREXATE. [Suspect]
     Active Substance: METHOTREXATE
     Indication: PRODUCT USED FOR UNKNOWN INDICATION
     Route: 065
     Dates: end: 20200626
  6. REMICADE [Suspect]
     Active Substance: INFLIXIMAB
     Indication: CROHN^S DISEASE
     Route: 042
     Dates: start: 20120411
  7. BUSCOPAN [Concomitant]
     Active Substance: BUTYLSCOPOLAMINE BROMIDE
     Indication: PRODUCT USED FOR UNKNOWN INDICATION
  8. ROSUVASTATIN CALCIUM. [Concomitant]
     Active Substance: ROSUVASTATIN CALCIUM
     Indication: PRODUCT USED FOR UNKNOWN INDICATION
  9. AZATHIOPRINE. [Suspect]
     Active Substance: AZATHIOPRINE
     Indication: PRODUCT USED FOR UNKNOWN INDICATION
     Route: 065
     Dates: end: 2019
  10. FOLIC ACID. [Concomitant]
     Active Substance: FOLIC ACID
     Indication: PRODUCT USED FOR UNKNOWN INDICATION
  11. RIVOTRIL [Concomitant]
     Active Substance: CLONAZEPAM
     Indication: PRODUCT USED FOR UNKNOWN INDICATION

REACTIONS (10)
  - Basal cell carcinoma [Unknown]
  - Product use issue [Unknown]
  - Dyspepsia [Not Recovered/Not Resolved]
  - Abdominal pain [Unknown]
  - Off label use [Unknown]
  - Arthralgia [Unknown]
  - Nausea [Unknown]
  - Diarrhoea [Unknown]
  - Headache [Not Recovered/Not Resolved]
  - Vision blurred [Unknown]

NARRATIVE: CASE EVENT DATE: 2020
